FAERS Safety Report 19661048 (Version 2)
Quarter: 2021Q4

REPORT INFORMATION
  Report Type: Other
  Country: AR (occurrence: AR)
  Receive Date: 20210805
  Receipt Date: 20211103
  Transmission Date: 20220304
  Serious: Yes (Other)
  Sender: FDA-Public Use
  Company Number: AR-002147023-NVSC2020AR312034

PATIENT
  Age: 51 Year
  Sex: Female

DRUGS (2)
  1. XOLAIR [Suspect]
     Active Substance: OMALIZUMAB
     Indication: Asthma
     Route: 058
     Dates: start: 20200716
  2. XOLAIR [Suspect]
     Active Substance: OMALIZUMAB
     Route: 058
     Dates: start: 20200716

REACTIONS (12)
  - Bronchospasm [Unknown]
  - Dyspnoea [Unknown]
  - Asthmatic crisis [Unknown]
  - Memory impairment [Unknown]
  - Drug ineffective [Unknown]
  - Cough [Unknown]
  - COVID-19 [Recovered/Resolved]
  - Tachycardia [Unknown]
  - Arterial disorder [Unknown]
  - Cardiomegaly [Unknown]
  - Sensitivity to weather change [Unknown]
  - Fear [Unknown]

NARRATIVE: CASE EVENT DATE: 20201024
